FAERS Safety Report 7116696-X (Version None)
Quarter: 2010Q4

REPORT INFORMATION
  Report Type: 
  Country: None (occurrence: None)
  Receive Date: 20101122
  Receipt Date: 20101112
  Transmission Date: 20110411
  Serious: Yes (Other)
  Sender: FDA-Public Use
  Company Number: B0685480A

PATIENT
  Sex: Male

DRUGS (3)
  1. CLAVULIN [Suspect]
     Dosage: 1G PER DAY
     Route: 048
     Dates: start: 20100903, end: 20100907
  2. TAVANIC [Suspect]
     Dosage: 1G PER DAY
     Route: 048
     Dates: start: 20100907, end: 20100907
  3. PRITOR [Concomitant]

REACTIONS (5)
  - EPIGLOTTIC OEDEMA [None]
  - EYELID OEDEMA [None]
  - OEDEMA PERIPHERAL [None]
  - PRURITUS [None]
  - URTICARIA [None]
